FAERS Safety Report 5545511-0 (Version None)
Quarter: 2007Q4

REPORT INFORMATION
  Report Type: 
  Country: None (occurrence: None)
  Receive Date: 20071206
  Receipt Date: 20071206
  Transmission Date: 20080405
  Serious: No
  Sender: FDA-Public Use
  Company Number: None

PATIENT
  Age: 97 Year
  Sex: Male

DRUGS (1)
  1. CLINIMIX 4.25/5 SULFITE FREE IN DEXTROSE 5% [Suspect]
     Dosage: INJECTABLE

REACTIONS (4)
  - ELECTROLYTE IMBALANCE [None]
  - MEDICATION ERROR [None]
  - RESPIRATORY DISORDER [None]
  - WRONG TECHNIQUE IN DRUG USAGE PROCESS [None]
